FAERS Safety Report 9208224 (Version 2)
Quarter: 2013Q4

REPORT INFORMATION
  Report Type: Spontaneous
  Country: US (occurrence: US)
  Receive Date: 20130403
  Receipt Date: 20131118
  Transmission Date: 20140711
  Serious: Yes (Hospitalization)
  Sender: FDA-Public Use
  Company Number: US-US-EMD SERONO, INC.-237345K07USA

PATIENT
  Age: 46 Year
  Sex: Female

DRUGS (7)
  1. REBIF [Suspect]
     Indication: MULTIPLE SCLEROSIS
     Route: 058
     Dates: start: 20030806, end: 20130615
  2. TEGRETOL [Concomitant]
     Indication: HEADACHE
     Route: 065
     Dates: start: 200701
  3. NEXIUM                             /01479302/ [Concomitant]
     Indication: GASTROOESOPHAGEAL REFLUX DISEASE
  4. BACLOFEN [Concomitant]
     Indication: MULTIPLE SCLEROSIS
  5. GABAPENTIN [Concomitant]
     Indication: SLEEP DISORDER
  6. CLONAZEPAM [Concomitant]
     Indication: SLEEP DISORDER
  7. CLONAZEPAM [Concomitant]
     Route: 058

REACTIONS (3)
  - Myocardial infarction [Recovered/Resolved]
  - Coronary artery occlusion [Recovered/Resolved]
  - Blood cholesterol increased [Recovering/Resolving]
